FAERS Safety Report 4334694-6 (Version None)
Quarter: 2004Q2

REPORT INFORMATION
  Report Type: 
  Country: None (occurrence: None)
  Receive Date: 20040407
  Receipt Date: 20040407
  Transmission Date: 20050107
  Serious: Yes (Hospitalization, Other)
  Sender: FDA-Public Use
  Company Number: None

PATIENT
  Age: 71 Year
  Sex: Male

DRUGS (1)
  1. IRESSA [Suspect]
     Indication: LARYNGEAL CANCER
     Dosage: 250 MG PO QD
     Route: 048
     Dates: start: 20031012, end: 20031231

REACTIONS (10)
  - ASPIRATION [None]
  - GENERAL NUTRITION DISORDER [None]
  - LEUKOCYTOSIS [None]
  - ONYCHOMYCOSIS [None]
  - PAIN IN EXTREMITY [None]
  - PARONYCHIA [None]
  - PYREXIA [None]
  - RESPIRATORY FAILURE [None]
  - SYNOVITIS [None]
  - VOMITING [None]
